FAERS Safety Report 5633197-6 (Version None)
Quarter: 2008Q1

REPORT INFORMATION
  Report Type: 
  Country: None (occurrence: None)
  Receive Date: 20080215
  Receipt Date: 20071030
  Transmission Date: 20080703
  Serious: Yes (Life-Threatening, Hospitalization)
  Sender: FDA-Public Use
  Company Number: 2007S1011199

PATIENT
  Age: 18 Year
  Sex: Male

DRUGS (3)
  1. AZATHIOPRINE [Suspect]
     Indication: DRUG USE FOR UNKNOWN INDICATION
     Dosage: 25 MG; DAILY; ORAL
     Route: 048
     Dates: start: 20070925, end: 20071015
  2. ASACOL [Concomitant]
  3. PREDNISOLONE [Concomitant]

REACTIONS (1)
  - PANCREATITIS [None]
